FAERS Safety Report 9724360 (Version 4)
Quarter: 2014Q2

REPORT INFORMATION
  Report Type: Spontaneous
  Country: US (occurrence: US)
  Receive Date: 20131202
  Receipt Date: 20140501
  Transmission Date: 20141212
  Serious: No
  Sender: FDA-Public Use
  Company Number: US-AMGEN-USASP2013083656

PATIENT
  Age: 56 Year
  Sex: Female
  Weight: 78.91 kg

DRUGS (4)
  1. ENBREL [Suspect]
     Indication: RHEUMATOID ARTHRITIS
     Dosage: 50 MG, QWK
     Route: 058
     Dates: start: 20130728
  2. METHOTREXATE [Concomitant]
     Indication: RHEUMATOID ARTHRITIS
     Dosage: 20 MG, QWK
     Route: 048
     Dates: start: 20100312
  3. PLAQUENIL                          /00072602/ [Concomitant]
     Indication: RHEUMATOID ARTHRITIS
     Dosage: 200 UNK, BID
     Route: 048
     Dates: start: 20101009
  4. FOLIC ACID [Concomitant]
     Dosage: 1 MG, QD
     Route: 048

REACTIONS (15)
  - Inflammation [Not Recovered/Not Resolved]
  - Cheilitis [Not Recovered/Not Resolved]
  - Skin disorder [Not Recovered/Not Resolved]
  - Erythema [Not Recovered/Not Resolved]
  - Pruritus [Not Recovered/Not Resolved]
  - Oral discomfort [Not Recovered/Not Resolved]
  - Skin haemorrhage [Not Recovered/Not Resolved]
  - Skin burning sensation [Not Recovered/Not Resolved]
  - Lip haemorrhage [Not Recovered/Not Resolved]
  - Purulent discharge [Not Recovered/Not Resolved]
  - Pain [Not Recovered/Not Resolved]
  - Drug ineffective [Not Recovered/Not Resolved]
  - Rash [Recovered/Resolved]
  - Furuncle [Not Recovered/Not Resolved]
  - Skin infection [Unknown]
